FAERS Safety Report 15425509 (Version 3)
Quarter: 2018Q4

REPORT INFORMATION
  Report Type: Spontaneous
  Country: US (occurrence: US)
  Receive Date: 20180925
  Receipt Date: 20181024
  Transmission Date: 20190204
  Serious: No
  Sender: FDA-Public Use
  Company Number: US-PFIZER INC-2018382929

PATIENT
  Age: 73 Year
  Sex: Female
  Weight: 70.3 kg

DRUGS (2)
  1. FLUCONAZOLE. [Suspect]
     Active Substance: FLUCONAZOLE
     Dosage: 400 MG, 1X/DAY, (TWO TABLETS BY MOUTH ONCE DAILY FOR 21 DAYS INITIALLY), (TAKE ANOTHER 7 DAY SUPPLY)
     Route: 048
     Dates: start: 20180607
  2. FLUCONAZOLE. [Suspect]
     Active Substance: FLUCONAZOLE
     Indication: RIFT VALLEY FEVER
     Dosage: 200 MG, UNK

REACTIONS (2)
  - Nail pigmentation [Not Recovered/Not Resolved]
  - Visual impairment [Unknown]

NARRATIVE: CASE EVENT DATE: 201808
